FAERS Safety Report 4825239-2 (Version None)
Quarter: 2005Q4

REPORT INFORMATION
  Report Type: 
  Country: None (occurrence: None)
  Receive Date: 20051109
  Receipt Date: 20051103
  Transmission Date: 20060501
  Serious: Yes (Death)
  Sender: FDA-Public Use
  Company Number: HQWYE227901SEP05

PATIENT
  Age: 48 Year
  Sex: Female

DRUGS (7)
  1. RAPAMUNE [Suspect]
     Indication: PROPHYLAXIS AGAINST TRANSPLANT REJECTION
     Dosage: 4 MG 1X PER 1 DAY ORAL
     Route: 048
     Dates: start: 20050805, end: 20050913
  2. SULFAMETHOXAZOLE + TRIMETHOPRIM [Concomitant]
  3. RANITIDINE [Concomitant]
  4. AMLODIPINE [Concomitant]
  5. HYDROCHLOROTHIAZIDE [Concomitant]
  6. OMEPRAZOLE [Concomitant]
  7. CYCLOSPORINE [Concomitant]

REACTIONS (12)
  - ASTHENIA [None]
  - BRONCHOPNEUMONIA [None]
  - HAEMATOCRIT DECREASED [None]
  - HAEMODIALYSIS [None]
  - HAEMOGLOBIN DECREASED [None]
  - HEPATIC HAEMORRHAGE [None]
  - HEPATITIS ACUTE [None]
  - HEPATITIS CHOLESTATIC [None]
  - NAUSEA [None]
  - PAIN [None]
  - POST PROCEDURAL HAEMORRHAGE [None]
  - VOMITING [None]
